FAERS Safety Report 13976813 (Version 2)
Quarter: 2017Q4

REPORT INFORMATION
  Report Type: Spontaneous
  Country: CN (occurrence: CN)
  Receive Date: 20170915
  Receipt Date: 20171103
  Transmission Date: 20180321
  Serious: Yes (Hospitalization, Other)
  Sender: FDA-Public Use
  Company Number: CN-GILEAD-2017-0292994

PATIENT
  Age: 51 Year
  Sex: Male

DRUGS (1)
  1. HEPSERA [Suspect]
     Active Substance: ADEFOVIR DIPIVOXIL
     Indication: HEPATITIS B
     Dosage: 10 MG, QD
     Route: 065

REACTIONS (7)
  - Osteonecrosis [Unknown]
  - Hypophosphataemia [Unknown]
  - Fatigue [Unknown]
  - Pathological fracture [Unknown]
  - Fanconi syndrome acquired [Unknown]
  - Myalgia [Unknown]
  - Osteomalacia [Unknown]
